FAERS Safety Report 4884679-6 (Version None)
Quarter: 2005Q4

REPORT INFORMATION
  Report Type: 
  Country: None (occurrence: None)
  Receive Date: 20051201
  Receipt Date: 20050922
  Transmission Date: 20060501
  Serious: No
  Sender: FDA-Public Use
  Company Number: 2005PV002384

PATIENT
  Age: 58 Year
  Sex: Male
  Weight: 145.151 kg

DRUGS (5)
  1. BYETTA [Suspect]
     Indication: DIABETES MELLITUS NON-INSULIN-DEPENDENT
     Dosage: 10 MCG;SC
     Route: 058
     Dates: start: 20050722, end: 20050101
  2. BYETTA [Suspect]
     Indication: DIABETES MELLITUS NON-INSULIN-DEPENDENT
     Dosage: 10 MCG;SC
     Route: 058
     Dates: start: 20050901
  3. SOLARASE [Suspect]
     Indication: SQUAMOUS CELL CARCINOMA
     Dates: start: 20050601, end: 20050910
  4. METFORMIN [Concomitant]
  5. HUMALOG [Concomitant]

REACTIONS (5)
  - PHOTODERMATOSIS [None]
  - RASH [None]
  - RASH ERYTHEMATOUS [None]
  - RASH PAPULAR [None]
  - RASH PRURITIC [None]
